FAERS Safety Report 6522698-4 (Version None)
Quarter: 2009Q4

REPORT INFORMATION
  Report Type: 
  Country: None (occurrence: None)
  Receive Date: 20091224
  Receipt Date: 20091210
  Transmission Date: 20100525
  Serious: Yes (Hospitalization)
  Sender: FDA-Public Use
  Company Number: 003641

PATIENT
  Age: 76 Year
  Sex: Female

DRUGS (3)
  1. MACUGEN [Suspect]
     Indication: MACULAR DEGENERATION
     Dosage: 0.3 MG, INTRAOCULAR
     Route: 031
     Dates: start: 20090706
  2. LEVOFLOXACIN [Concomitant]
  3. BROMFENAC SODIUM (BROMFENAC SODIUM) [Concomitant]

REACTIONS (1)
  - MYOCARDIAL INFARCTION [None]
